FAERS Safety Report 12455238 (Version 1)
Quarter: 2016Q2

REPORT INFORMATION
  Report Type: Report from Study
  Country: BR (occurrence: BR)
  Receive Date: 20160610
  Receipt Date: 20160610
  Transmission Date: 20160815
  Serious: Yes (Other)
  Sender: FDA-Public Use
  Company Number: BR-ROCHE-1770732

PATIENT
  Sex: Female

DRUGS (2)
  1. XOLAIR [Suspect]
     Active Substance: OMALIZUMAB
     Indication: ASTHMA
     Route: 058
     Dates: start: 20150807
  2. RELVAR [Concomitant]
     Active Substance: FLUTICASONE FUROATE\VILANTEROL TRIFENATATE
     Indication: ASTHMA
     Dosage: 200/25 MG, 2 DF, QD
     Route: 055

REACTIONS (8)
  - Musculoskeletal stiffness [Recovering/Resolving]
  - Asthma [Not Recovered/Not Resolved]
  - Injection site discolouration [Recovering/Resolving]
  - Abdominal distension [Not Recovered/Not Resolved]
  - Injection site erythema [Recovering/Resolving]
  - Tendon pain [Recovering/Resolving]
  - Gait disturbance [Recovering/Resolving]
  - Injection site swelling [Recovering/Resolving]
